FAERS Safety Report 5960862-3 (Version None)
Quarter: 2008Q4

REPORT INFORMATION
  Report Type: 
  Country: None (occurrence: None)
  Receive Date: 20081118
  Receipt Date: 20081103
  Transmission Date: 20090506
  Serious: Yes (Hospitalization)
  Sender: FDA-Public Use
  Company Number: 2008S1018743

PATIENT
  Age: 59 Year
  Sex: Male

DRUGS (6)
  1. TEMERIT (NEBIVOLOL) [Suspect]
     Indication: HYPERTENSION
     Dosage: 10 MG; DAILY; ORAL
     Route: 048
     Dates: start: 20080801, end: 20080901
  2. ISOPTIN [Suspect]
     Indication: DRUG USE FOR UNKNOWN INDICATION
     Dosage: ORAL
     Route: 048
     Dates: start: 20080901, end: 20080901
  3. METFORMIN HCL [Suspect]
     Indication: TYPE 2 DIABETES MELLITUS
     Dosage: 3000 MG; DAILY; ORAL
     Route: 048
     Dates: start: 20060101
  4. DIAMICRON (GLICLAZINE) [Suspect]
     Indication: TYPE 2 DIABETES MELLITUS
     Dosage: ORAL
     Route: 048
     Dates: start: 20060101
  5. MICARDIS [Suspect]
     Indication: DRUG USE FOR UNKNOWN INDICATION
     Dosage: ORAL
     Route: 048
  6. ATORVASTATIN CALCIUM [Suspect]
     Indication: DYSLIPIDAEMIA

REACTIONS (1)
  - HAEMOLYTIC ANAEMIA [None]
